FAERS Safety Report 8048654-5 (Version None)
Quarter: 2012Q1

REPORT INFORMATION
  Report Type: 
  Country: None (occurrence: None)
  Receive Date: 20120117
  Receipt Date: 20120105
  Transmission Date: 20120608
  Serious: No
  Sender: FDA-Public Use
  Company Number: US-MYLANLABS-2011S1024460

PATIENT
  Age: 55 Year
  Sex: Female

DRUGS (7)
  1. PLAQUENIL [Concomitant]
  2. MOTRIN [Concomitant]
  3. ETHAMBUTOL HYDROCHLORIDE [Concomitant]
  4. CELEBREX [Concomitant]
  5. VORICONAZOLE [Suspect]
     Indication: ASPERGILLOSIS
     Route: 048
     Dates: start: 20110627, end: 20110729
  6. CLARITHROMYCIN [Concomitant]
  7. TRAZODONE HCL [Concomitant]

REACTIONS (2)
  - HYPERSENSITIVITY [None]
  - RASH [None]
